FAERS Safety Report 9695088 (Version 2)
Quarter: 2013Q4

REPORT INFORMATION
  Report Type: Other
  Country: VE (occurrence: VE)
  Receive Date: 20131119
  Receipt Date: 20131123
  Transmission Date: 20140711
  Serious: No
  Sender: FDA-Public Use
  Company Number: PHHY2013VE131047

PATIENT
  Age: 53 Year
  Sex: Female

DRUGS (5)
  1. ACLASTA [Suspect]
     Indication: OSTEOPOROSIS
     Dosage: 5 MG, UNK
     Route: 042
     Dates: start: 20090221
  2. ACLASTA [Suspect]
     Dosage: 5 MG, UNK
     Route: 042
     Dates: start: 2010
  3. ACLASTA [Suspect]
     Dosage: 5 MG, UNK
     Route: 042
     Dates: start: 2011
  4. ACLASTA [Suspect]
     Dosage: 5 MG, UNK
     Route: 042
     Dates: start: 2012
  5. CALCIUM [Concomitant]
     Indication: OSTEOPOROSIS
     Dosage: UNK UKN, UNK
     Dates: start: 2009

REACTIONS (1)
  - No adverse event [Unknown]
